FAERS Safety Report 6713539-0 (Version None)
Quarter: 2010Q2

REPORT INFORMATION
  Report Type: 
  Country: None (occurrence: None)
  Receive Date: 20100503
  Receipt Date: 20100426
  Transmission Date: 20101027
  Serious: Yes (Hospitalization)
  Sender: FDA-Public Use
  Company Number: 2009EU003309

PATIENT
  Age: 24 Year
  Sex: Female
  Weight: 60.1 kg

DRUGS (19)
  1. TACROLIMUS [Suspect]
     Indication: RENAL TRANSPLANT
     Dosage: 10 MG, UID/QD, ORAL; 9 MG, UID/QD, ORAL; 8 MG, ORAL
     Route: 048
     Dates: start: 20090804, end: 20090902
  2. TACROLIMUS [Suspect]
     Indication: RENAL TRANSPLANT
     Dosage: 10 MG, UID/QD, ORAL; 9 MG, UID/QD, ORAL; 8 MG, ORAL
     Route: 048
     Dates: start: 20090903, end: 20090907
  3. TACROLIMUS [Suspect]
     Indication: RENAL TRANSPLANT
     Dosage: 10 MG, UID/QD, ORAL; 9 MG, UID/QD, ORAL; 8 MG, ORAL
     Route: 048
     Dates: start: 20090908
  4. CELLCEPT [Suspect]
     Indication: RENAL TRANSPLANT
     Dosage: 500 MG, BID, ORAL
     Route: 048
     Dates: start: 20090804
  5. MORPHINE [Concomitant]
  6. ISONIAZID [Concomitant]
  7. PYRIDOXINE (PYRIDOXINE) [Concomitant]
  8. SULFAMETHOXAZOLE AND TRIMETHOPRIM (SULFAMETHOXAZOLE, TRIMETHOPRIM) [Concomitant]
  9. VALCYTE [Concomitant]
  10. OMEPRAZOLE [Concomitant]
  11. BASILIXIMAB (BASILIXIMAB) [Concomitant]
  12. SOLU-MEDROL [Concomitant]
  13. LASIX [Concomitant]
  14. SLOW-K [Concomitant]
  15. FUNGIZONE [Concomitant]
  16. DOXYFENE (PARACETAMOL, DEXTROPROPOXYPHENE HYDROCHLORIDE) [Concomitant]
  17. MAXOLON [Concomitant]
  18. ZINACEF [Concomitant]
  19. CEFUROXIME AXETIL [Concomitant]

REACTIONS (9)
  - HYPERPARATHYROIDISM [None]
  - NASOPHARYNGITIS [None]
  - PARATHYROID TUMOUR BENIGN [None]
  - PERITONEAL INFECTION [None]
  - PHARYNGITIS [None]
  - PROCEDURAL PAIN [None]
  - PROTEUS INFECTION [None]
  - THYROID ADENOMA [None]
  - VOMITING [None]
